FAERS Safety Report 8078115-9 (Version None)
Quarter: 2012Q1

REPORT INFORMATION
  Report Type: 
  Country: None (occurrence: None)
  Receive Date: 20120127
  Receipt Date: 20110119
  Transmission Date: 20120608
  Serious: No
  Sender: FDA-Public Use
  Company Number: US-ABBOTT-10P-163-0688958-00

PATIENT
  Sex: Male

DRUGS (1)
  1. HUMIRA [Suspect]
     Indication: PSORIATIC ARTHROPATHY

REACTIONS (3)
  - DEVICE MALFUNCTION [None]
  - DRUG DOSE OMISSION [None]
  - INJECTION SITE PAIN [None]
